FAERS Safety Report 12337114 (Version 1)
Quarter: 2016Q2

REPORT INFORMATION
  Report Type: Spontaneous
  Country: US (occurrence: None)
  Receive Date: 20160504
  Receipt Date: 20160504
  Transmission Date: 20160815
  Serious: Yes (Disabling)
  Sender: FDA-Public Use
  Company Number: None

PATIENT
  Age: 66 Year
  Sex: Female
  Weight: 74.84 kg

DRUGS (7)
  1. MOTRIN IB [Concomitant]
     Active Substance: IBUPROFEN
  2. FISH OIL [Concomitant]
     Active Substance: FISH OIL
  3. VITAMIN B COMPLETE MULTIVITAMN [Concomitant]
  4. ZINC [Concomitant]
     Active Substance: ZINC\ZINC CHLORIDE
  5. BREO ELLIPTA [Suspect]
     Active Substance: FLUTICASONE FUROATE\VILANTEROL TRIFENATATE
     Indication: CHRONIC OBSTRUCTIVE PULMONARY DISEASE
     Dosage: 100MCG/25MCG  1 PUFF ONCE/DAILY BY MOUTH
     Route: 048
     Dates: start: 201408, end: 201604
  6. FLUOXETINE [Concomitant]
     Active Substance: FLUOXETINE HYDROCHLORIDE
  7. VITAMIN D [Concomitant]
     Active Substance: CHOLECALCIFEROL

REACTIONS (2)
  - Cataract [None]
  - Contraindicated drug administered [None]

NARRATIVE: CASE EVENT DATE: 2015
